FAERS Safety Report 14192954 (Version 1)
Quarter: 2017Q4

REPORT INFORMATION
  Report Type: Spontaneous
  Country: US (occurrence: US)
  Receive Date: 20171115
  Receipt Date: 20171115
  Transmission Date: 20180321
  Serious: No
  Sender: FDA-Public Use
  Company Number: US-NEOS THERAPEUTICS, LP-2017NEO00085

PATIENT
  Sex: Male
  Weight: 21.88 kg

DRUGS (4)
  1. ADZENYS XR-ODT [Suspect]
     Active Substance: AMPHETAMINE
     Indication: ATTENTION DEFICIT/HYPERACTIVITY DISORDER
     Dosage: UNK MG, 1X/DAY
     Route: 048
     Dates: start: 2017
  2. ADZENYS XR-ODT [Suspect]
     Active Substance: AMPHETAMINE
     Dosage: 18 MG, 1X/DAY
     Route: 048
     Dates: start: 2017, end: 2017
  3. ADZENYS XR-ODT [Suspect]
     Active Substance: AMPHETAMINE
     Dosage: 15.7 MG, 1X/DAY
     Route: 048
     Dates: start: 201708
  4. ESCITALOPRAM [Concomitant]
     Active Substance: ESCITALOPRAM OXALATE
     Dosage: UNK
     Dates: start: 201602

REACTIONS (2)
  - Dermatillomania [Unknown]
  - Pruritus [Unknown]

NARRATIVE: CASE EVENT DATE: 2017
